FAERS Safety Report 7137160-8 (Version None)
Quarter: 2010Q4

REPORT INFORMATION
  Report Type: 
  Country: None (occurrence: None)
  Receive Date: 20101206
  Receipt Date: 20080131
  Transmission Date: 20110411
  Serious: Yes (Death, Hospitalization)
  Sender: FDA-Public Use
  Company Number: US-ACTELION-A-US2006-13486

PATIENT

DRUGS (1)
  1. TRACLEER [Suspect]
     Indication: PULMONARY ARTERIAL HYPERTENSION
     Route: 048
     Dates: start: 20051001

REACTIONS (14)
  - BRONCHITIS [None]
  - CONTUSION [None]
  - DEATH [None]
  - DISEASE PROGRESSION [None]
  - DYSPNOEA [None]
  - EPISTAXIS [None]
  - FALL [None]
  - HAEMORRHAGE [None]
  - OXYGEN CONSUMPTION INCREASED [None]
  - PRODUCTIVE COUGH [None]
  - PULMONARY HYPERTENSION [None]
  - SKIN LACERATION [None]
  - SWELLING [None]
  - TRANSFUSION [None]
